FAERS Safety Report 7194906-0 (Version None)
Quarter: 2010Q4

REPORT INFORMATION
  Report Type: 
  Country: None (occurrence: None)
  Receive Date: 20101223
  Receipt Date: 20100920
  Transmission Date: 20110411
  Serious: No
  Sender: FDA-Public Use
  Company Number: US-AMGEN-KDL439717

PATIENT

DRUGS (13)
  1. ENBREL [Suspect]
     Indication: PRODUCT USED FOR UNKNOWN INDICATION
     Dosage: 50 MG, QWK
     Route: 058
  2. METHOTREXATE [Concomitant]
     Dosage: 2.5 MG, UNK
  3. PREDNISONE [Concomitant]
     Dosage: 1 MG, UNK
  4. NIFEDIPINE [Concomitant]
     Dosage: 10 MG, UNK
  5. ASPIRIN [Concomitant]
     Dosage: 81 MG, UNK
  6. FOLIC ACID [Concomitant]
     Dosage: 1 MG, UNK
  7. TOPROL-XL [Concomitant]
     Dosage: 50 MG, UNK
  8. LANSOPRAZOLE [Concomitant]
     Dosage: 30 MG, UNK
  9. ASCORBIC ACID [Concomitant]
     Dosage: 500 MG, UNK
  10. FISH OIL [Concomitant]
     Dosage: UNK UNK, UNK
  11. CALCIUM [Concomitant]
     Dosage: UNK UNK, UNK
  12. PYRIDOXINE HYDROCHLORIDE [Concomitant]
     Dosage: 100 MG, UNK
  13. EZETIMIBE/SIMVASTATIN [Concomitant]
     Dosage: UNK UNK, UNK

REACTIONS (1)
  - RASH [None]
